FAERS Safety Report 9050718 (Version 1)
Quarter: 2013Q1

REPORT INFORMATION
  Report Type: Spontaneous
  Country: US (occurrence: US)
  Receive Date: 20130205
  Receipt Date: 20130205
  Transmission Date: 20140127
  Serious: Yes (Other)
  Sender: FDA-Public Use
  Company Number: US-009507513-1302USA000022

PATIENT
  Sex: Female
  Weight: 138 kg

DRUGS (14)
  1. FOSAMAX [Suspect]
     Indication: OSTEOPOROSIS
     Dosage: 70 MG, UNK
     Route: 048
     Dates: start: 201101, end: 20120101
  2. XGEVA [Suspect]
     Indication: BREAST CANCER RECURRENT
     Dosage: UNK, QM
     Route: 042
     Dates: start: 20120301, end: 20120901
  3. XGEVA [Suspect]
     Indication: OSTEOPOROSIS
  4. XGEVA [Suspect]
     Indication: PROPHYLAXIS
  5. PRILOSEC [Concomitant]
     Route: 048
  6. SIMVASTATIN TABLETS, USP [Concomitant]
  7. ANTINEOPLASTIC (UNSPECIFIED) [Concomitant]
  8. LEVOXYL [Concomitant]
  9. FOLIC ACID [Concomitant]
  10. BAYER ASPIRIN [Concomitant]
  11. CENTRUM SILVER [Concomitant]
  12. ARGININE [Concomitant]
  13. CALCIUM (UNSPECIFIED) [Concomitant]
  14. VESICARE [Concomitant]

REACTIONS (3)
  - Breast cancer recurrent [Unknown]
  - Pain [Not Recovered/Not Resolved]
  - Osteonecrosis of jaw [Not Recovered/Not Resolved]
